FAERS Safety Report 20448323 (Version 3)
Quarter: 2022Q1

REPORT INFORMATION
  Report Type: Spontaneous
  Country: BR (occurrence: BR)
  Receive Date: 20220209
  Receipt Date: 20220222
  Transmission Date: 20220423
  Serious: Yes (Death, Other)
  Sender: FDA-Public Use
  Company Number: BR-NOVARTISPH-NVSC2022BR026780

PATIENT
  Sex: Male

DRUGS (1)
  1. ELTROMBOPAG OLAMINE [Suspect]
     Active Substance: ELTROMBOPAG OLAMINE
     Indication: Immune thrombocytopenia
     Dosage: UNK UNK, QD (STARTED 1 WEEK AGO)
     Route: 065

REACTIONS (5)
  - Haemorrhagic stroke [Fatal]
  - Depressed level of consciousness [Fatal]
  - Brain death [Fatal]
  - Haemorrhage [Unknown]
  - Thrombocytopenia [Unknown]
